FAERS Safety Report 13364098 (Version 2)
Quarter: 2018Q1

REPORT INFORMATION
  Report Type: Spontaneous
  Country: US (occurrence: US)
  Receive Date: 20170323
  Receipt Date: 20180326
  Transmission Date: 20180508
  Serious: No
  Sender: FDA-Public Use
  Company Number: US-KASTLE THERAPEUTICS, LLC-2017KAS000001

PATIENT
  Age: 61 Year
  Sex: Female
  Weight: 77.63 kg

DRUGS (16)
  1. PHENERGAN [Concomitant]
     Active Substance: PROMETHAZINE HYDROCHLORIDE
     Indication: NAUSEA
     Route: 048
     Dates: start: 201701
  2. KYNAMRO [Suspect]
     Active Substance: MIPOMERSEN SODIUM
     Route: 058
     Dates: start: 20170714, end: 20170714
  3. EFFIENT [Concomitant]
     Active Substance: PRASUGREL HYDROCHLORIDE
     Indication: CARDIAC DISORDER
  4. RANITIDINE. [Concomitant]
     Active Substance: RANITIDINE
     Indication: REFLUX GASTRITIS
     Route: 048
  5. CLARINEX [Concomitant]
     Active Substance: DESLORATADINE
     Indication: HYPERSENSITIVITY
     Route: 048
  6. ALIGN [Concomitant]
     Active Substance: BIFIDOBACTERIUM LONGUM SUBSP. INFANTIS
     Indication: PROPHYLAXIS
     Route: 048
     Dates: start: 2016
  7. REPATHA [Concomitant]
     Active Substance: EVOLOCUMAB
     Indication: HYPERCHOLESTEROLAEMIA
  8. DEMEROL [Concomitant]
     Active Substance: MEPERIDINE HYDROCHLORIDE
     Indication: OESOPHAGEAL SPASM
     Route: 048
     Dates: start: 201701
  9. MICARDIS [Concomitant]
     Active Substance: TELMISARTAN
     Indication: CARDIAC DISORDER
     Route: 048
     Dates: start: 2015
  10. SOMA [Concomitant]
     Active Substance: CARISOPRODOL
     Indication: MUSCLE SPASMS
     Route: 048
     Dates: start: 201701
  11. PHENERGAN [Concomitant]
     Active Substance: PROMETHAZINE HYDROCHLORIDE
     Indication: VOMITING
  12. KYNAMRO [Suspect]
     Active Substance: MIPOMERSEN SODIUM
     Indication: TYPE IIA HYPERLIPIDAEMIA
     Route: 058
     Dates: end: 20161231
  13. BACLOFEN. [Concomitant]
     Active Substance: BACLOFEN
     Indication: OESOPHAGEAL SPASM
  14. NEXIUM [Concomitant]
     Active Substance: ESOMEPRAZOLE MAGNESIUM
     Indication: PRODUCT USED FOR UNKNOWN INDICATION
  15. EFFIENT [Concomitant]
     Active Substance: PRASUGREL HYDROCHLORIDE
     Indication: PLATELET COUNT INCREASED
     Route: 048
     Dates: start: 2011
  16. DEMEROL [Concomitant]
     Active Substance: MEPERIDINE HYDROCHLORIDE
     Indication: PAIN

REACTIONS (17)
  - Chest pain [Recovered/Resolved]
  - Oesophageal spasm [Recovered/Resolved]
  - Haemoglobin decreased [Unknown]
  - Platelet count decreased [Recovered/Resolved]
  - Injection site swelling [Unknown]
  - Chills [Recovered/Resolved]
  - Red blood cell count decreased [Unknown]
  - Vomiting [Recovered/Resolved]
  - Fatigue [Unknown]
  - Injection site haematoma [Unknown]
  - Pain in extremity [Recovered/Resolved]
  - Pain in jaw [Recovered/Resolved]
  - Petechiae [Unknown]
  - Haematocrit decreased [Unknown]
  - Muscle spasms [Recovered/Resolved]
  - Palpitations [Unknown]
  - Nausea [Recovered/Resolved]

NARRATIVE: CASE EVENT DATE: 201612
